FAERS Safety Report 4974563-1 (Version None)
Quarter: 2006Q1

REPORT INFORMATION
  Report Type: 
  Country: None (occurrence: None)
  Receive Date: 20060215
  Receipt Date: 20050118
  Transmission Date: 20060701
  Serious: Yes (Other)
  Sender: FDA-Public Use
  Company Number: PROG00205000270

PATIENT
  Age: 57 Year
  Weight: 75 kg

DRUGS (3)
  1. PROMETRIUM [Suspect]
     Indication: HORMONE REPLACEMENT THERAPY
     Dosage: 200 MILLIGRAM(S) QD ORAL DAILY DOSE: 200 MILLIGRAM (S)
     Route: 048
     Dates: start: 20000801, end: 20010707
  2. ESTRATEST H.S. [Suspect]
     Indication: HORMONE REPLACEMENT THERAPY
     Dosage: 1 DOSAGE FORM QD ORAL DAILY DOSE: 1 DOSAGE FORM
     Route: 048
     Dates: start: 20010322, end: 20010707
  3. PREMPRO [Suspect]
     Indication: HORMONE REPLACEMENT THERAPY
     Dosage: 0.625 MILLIGRAM (S) QD ORAL DAILY DOSE: 625 MILLIGRAM (S)
     Route: 048
     Dates: start: 19980922, end: 20020101

REACTIONS (1)
  - BREAST CANCER [None]
